FAERS Safety Report 6215078-2 (Version None)
Quarter: 2009Q2

REPORT INFORMATION
  Report Type: 
  Country: None (occurrence: None)
  Receive Date: 20090604
  Receipt Date: 20090602
  Transmission Date: 20091009
  Serious: Yes (Death, Other)
  Sender: FDA-Public Use
  Company Number: US-TEVA-145727USA

PATIENT
  Sex: Female
  Weight: 42.6 kg

DRUGS (4)
  1. COPAXONE [Suspect]
     Indication: MULTIPLE SCLEROSIS
     Route: 058
     Dates: start: 20060202
  2. INTERFERON BETA-1A [Suspect]
     Route: 058
     Dates: start: 20050607, end: 20060117
  3. PENTOSAN POLYSULFATE SODIUM [Concomitant]
  4. PEGFILGRASTIM [Concomitant]

REACTIONS (1)
  - NON-SMALL CELL LUNG CANCER STAGE IIIB [None]
